FAERS Safety Report 9068323 (Version 1)
Quarter: 2013Q1

REPORT INFORMATION
  Report Type: Spontaneous
  Country: IN (occurrence: IN)
  Receive Date: 20130206
  Receipt Date: 20130206
  Transmission Date: 20140127
  Serious: Yes (Death, Other)
  Sender: FDA-Public Use
  Company Number: IN-BAXTER-2012BAX021772

PATIENT
  Sex: Female

DRUGS (1)
  1. DIANEAL PD-2 PERITONEAL DIALISIS SOLUTION ULTRABAG WITH 2.5% DEXTROSE [Suspect]
     Indication: PERITONEAL DIALYSIS
     Route: 033
     Dates: start: 20121022

REACTIONS (5)
  - Cardiac disorder [Fatal]
  - Convulsion [Fatal]
  - Hypertension [Fatal]
  - Peritonitis [Not Recovered/Not Resolved]
  - Peritoneal dialysis complication [Unknown]
